FAERS Safety Report 6360367-4 (Version None)
Quarter: 2009Q3

REPORT INFORMATION
  Report Type: 
  Country: None (occurrence: None)
  Receive Date: 20090917
  Receipt Date: 20090902
  Transmission Date: 20100115
  Serious: Yes (Other)
  Sender: FDA-Public Use
  Company Number: DK-GENENTECH-290338

PATIENT
  Sex: Female

DRUGS (5)
  1. RITUXIMAB [Suspect]
     Indication: B-CELL LYMPHOMA
     Dosage: 600 MG, Q3W
     Route: 042
     Dates: start: 20060607
  2. CYCLOPHOSPHAMIDE [Suspect]
     Indication: B-CELL LYMPHOMA
     Dosage: 1250 MG, Q3W
     Route: 042
     Dates: start: 20060607
  3. VINCRISTINE [Suspect]
     Indication: B-CELL LYMPHOMA
     Dosage: 2 MG, Q3W
     Route: 042
     Dates: start: 20060607
  4. PREDNISOLONE [Suspect]
     Indication: B-CELL LYMPHOMA
     Dosage: 75 MG, Q3W
     Route: 048
     Dates: start: 20060608
  5. METHYLPREDNISOLONE ACETATE [Suspect]
     Indication: B-CELL LYMPHOMA
     Dosage: 80 MG, Q3W
     Route: 042
     Dates: start: 20060607

REACTIONS (1)
  - BREAST CANCER [None]
